FAERS Safety Report 8235417-0 (Version None)
Quarter: 2012Q1

REPORT INFORMATION
  Report Type: 
  Country: None (occurrence: None)
  Receive Date: 20120322
  Receipt Date: 20120314
  Transmission Date: 20120608
  Serious: Yes (Other)
  Sender: FDA-Public Use
  Company Number: NGX_00459_2011

PATIENT
  Age: 50 Year
  Sex: Male

DRUGS (1)
  1. QUTENZA [Suspect]
     Indication: NEURALGIA
     Dosage: (4 DF, [PATCH] TOPICAL)
     Route: 061

REACTIONS (2)
  - APPLICATION SITE PAIN [None]
  - CIRCULATORY COLLAPSE [None]
